FAERS Safety Report 4450449-6 (Version None)
Quarter: 2004Q3

REPORT INFORMATION
  Report Type: 
  Country: None (occurrence: None)
  Receive Date: 20040802
  Receipt Date: 20040226
  Transmission Date: 20050211
  Serious: Yes (Other)
  Sender: FDA-Public Use
  Company Number: US-SHR-04-021848

PATIENT
  Age: 41 Year
  Sex: Male

DRUGS (1)
  1. MAGNEVIST [Suspect]
     Indication: NUCLEAR MAGNETIC RESONANCE IMAGING BRAIN
     Dosage: 15 M1, 1 DOSE, INTRAVENOUS
     Route: 042
     Dates: start: 20040219, end: 20040219

REACTIONS (10)
  - ABDOMINAL PAIN [None]
  - CHEST DISCOMFORT [None]
  - DYSPNOEA [None]
  - EYE SWELLING [None]
  - HYPERSENSITIVITY [None]
  - PARAESTHESIA [None]
  - SNEEZING [None]
  - SWELLING [None]
  - SWELLING FACE [None]
  - URTICARIA [None]
